FAERS Safety Report 11114140 (Version 1)
Quarter: 2015Q2

REPORT INFORMATION
  Report Type: Spontaneous
  Country: NL (occurrence: NL)
  Receive Date: 20150514
  Receipt Date: 20150514
  Transmission Date: 20150821
  Serious: Yes (Other)
  Sender: FDA-Public Use
  Company Number: PHHY2015NL053339

PATIENT
  Age: 36 Year
  Sex: Female

DRUGS (6)
  1. TASIGNA [Suspect]
     Active Substance: NILOTINIB
     Indication: B-CELL TYPE ACUTE LEUKAEMIA
     Dosage: 600 MG, QD
     Route: 065
     Dates: start: 201202, end: 20150422
  2. LIVIAL [Concomitant]
     Active Substance: TIBOLONE
     Indication: PRODUCT USED FOR UNKNOWN INDICATION
     Dosage: 5 MG, 1DD
     Route: 065
     Dates: start: 20150305
  3. PERINDOPRIL [Concomitant]
     Active Substance: PERINDOPRIL
     Indication: PRODUCT USED FOR UNKNOWN INDICATION
     Dosage: 4 MG, 1DD
     Route: 065
     Dates: start: 20150305
  4. SIMVASTATIN. [Concomitant]
     Active Substance: SIMVASTATIN
     Indication: PRODUCT USED FOR UNKNOWN INDICATION
     Dosage: 40 MG,, 1DD
     Route: 065
  5. ASCAL CARDIO [Concomitant]
     Active Substance: CARBASALATE
     Indication: PRODUCT USED FOR UNKNOWN INDICATION
     Dosage: 100 MG,1DD
     Route: 065
     Dates: start: 20150305
  6. OXAZEPAM. [Concomitant]
     Active Substance: OXAZEPAM
     Indication: PRODUCT USED FOR UNKNOWN INDICATION
     Dosage: 10 MG, PRN, BEFORE THE NIGHT
     Route: 065
     Dates: start: 20150305

REACTIONS (12)
  - Cerebral artery occlusion [Unknown]
  - Intermittent claudication [Unknown]
  - Angiopathy [Unknown]
  - Collateral circulation [Unknown]
  - Cerebrovascular accident [Unknown]
  - Carotid intima-media thickness increased [Unknown]
  - Femoral artery occlusion [Unknown]
  - Carotid artery stenosis [Unknown]
  - Peripheral artery stenosis [Unknown]
  - Limb discomfort [Unknown]
  - Off label use [Unknown]
  - Peripheral arterial occlusive disease [Unknown]

NARRATIVE: CASE EVENT DATE: 2012
